FAERS Safety Report 7576081-3 (Version None)
Quarter: 2011Q2

REPORT INFORMATION
  Report Type: 
  Country: None (occurrence: None)
  Receive Date: 20110628
  Receipt Date: 20110606
  Transmission Date: 20111010
  Serious: Yes (Hospitalization, Other)
  Sender: FDA-Public Use
  Company Number: US-BAYER-201034745NA

PATIENT
  Age: 23 Year
  Sex: Female
  Weight: 95.238 kg

DRUGS (7)
  1. YASMIN [Suspect]
     Indication: PREMENSTRUAL SYNDROME
  2. YAZ [Suspect]
     Indication: PREMENSTRUAL SYNDROME
  3. YAZ [Suspect]
     Indication: ACNE
  4. PREVACID [Concomitant]
  5. YAZ [Suspect]
  6. YASMIN [Suspect]
  7. YASMIN [Suspect]
     Indication: ACNE

REACTIONS (3)
  - INJURY [None]
  - GALLBLADDER DISORDER [None]
  - CHOLECYSTITIS CHRONIC [None]
